FAERS Safety Report 9249888 (Version 1)
Quarter: 2013Q2

REPORT INFORMATION
  Report Type: Spontaneous
  Country: BR (occurrence: BR)
  Receive Date: 20130423
  Receipt Date: 20130423
  Transmission Date: 20140414
  Serious: Yes (Other)
  Sender: FDA-Public Use
  Company Number: BR-MYLANLABS-2013S1008058

PATIENT
  Age: 79 Year
  Sex: 0

DRUGS (2)
  1. DICLOFENAC [Suspect]
     Route: 065
  2. PIROXICAM [Interacting]
     Route: 065

REACTIONS (2)
  - Gastrointestinal haemorrhage [Unknown]
  - Drug interaction [Unknown]
